FAERS Safety Report 12938205 (Version 1)
Quarter: 2016Q4

REPORT INFORMATION
  Report Type: Spontaneous
  Country: US (occurrence: US)
  Receive Date: 20161114
  Receipt Date: 20161114
  Transmission Date: 20170207
  Serious: Yes (Hospitalization)
  Sender: FDA-Public Use
  Company Number: None

PATIENT
  Age: 62 Year
  Sex: Male

DRUGS (12)
  1. VITAMIN K [Concomitant]
     Active Substance: PHYTONADIONE
  2. LIPITOR [Concomitant]
     Active Substance: ATORVASTATIN CALCIUM
  3. AZITHROMYCIN ANHYDROUS. [Concomitant]
     Active Substance: AZITHROMYCIN ANHYDROUS
  4. TACROLIMUS 1MG CAP [Suspect]
     Active Substance: TACROLIMUS
     Indication: LUNG TRANSPLANT
     Route: 048
     Dates: start: 201408
  5. VALCYTE [Concomitant]
     Active Substance: VALGANCICLOVIR HYDROCHLORIDE
  6. ITRACONAZOLE. [Concomitant]
     Active Substance: ITRACONAZOLE
  7. DEXILANT [Concomitant]
     Active Substance: DEXLANSOPRAZOLE
  8. FORTEO [Suspect]
     Active Substance: TERIPARATIDE
     Indication: LUNG TRANSPLANT
     Dosage: FORTEO 20MCG - SUBCUTANEOUS - QD FOR 28 DAYS
     Route: 058
     Dates: start: 201512
  9. PREDNISONE. [Concomitant]
     Active Substance: PREDNISONE
  10. BACTRIM [Concomitant]
     Active Substance: SULFAMETHOXAZOLE\TRIMETHOPRIM
  11. VALGANCICLOVIR. [Concomitant]
     Active Substance: VALGANCICLOVIR
  12. GRANIX [Suspect]
     Active Substance: TBO-FILGRASTIM
     Indication: LUNG TRANSPLANT
     Route: 058
     Dates: start: 201405

REACTIONS (1)
  - Acute respiratory failure [None]
